FAERS Safety Report 14671192 (Version 2)
Quarter: 2020Q2

REPORT INFORMATION
  Report Type: Spontaneous
  Country: DE (occurrence: DE)
  Receive Date: 20180322
  Receipt Date: 20200629
  Transmission Date: 20200713
  Serious: Yes (Hospitalization, Other)
  Sender: FDA-Public Use
  Company Number: DE-SA-2018SA081193

PATIENT
  Age: 67 Year
  Sex: Female
  Weight: 73 kg

DRUGS (5)
  1. ERBITUX [Suspect]
     Active Substance: CETUXIMAB
     Indication: RECTAL CANCER METASTATIC
     Dosage: 400 MG/M2,QW
     Route: 042
     Dates: start: 20170524, end: 20170524
  2. FLUOROURACIL. [Suspect]
     Active Substance: FLUOROURACIL
     Indication: RECTAL CANCER METASTATIC
     Dosage: 2400 MG/M2
     Route: 042
     Dates: start: 20170503
  3. OXALIPLATIN. [Suspect]
     Active Substance: OXALIPLATIN
     Indication: RECTAL CANCER METASTATIC
     Dosage: 85 MG/M2
     Route: 042
     Dates: start: 20170503
  4. ERBITUX [Suspect]
     Active Substance: CETUXIMAB
     Dosage: 250 MG/M2,QW
     Route: 042
     Dates: start: 20170531
  5. FOLINIC ACID [Suspect]
     Active Substance: LEUCOVORIN
     Indication: RECTAL CANCER METASTATIC
     Dosage: 400 MG/M2
     Route: 042
     Dates: start: 20170503

REACTIONS (4)
  - Nausea [Recovered/Resolved]
  - Abdominal pain upper [Recovered/Resolved]
  - Vomiting [Recovered/Resolved]
  - Subileus [Recovered/Resolved]

NARRATIVE: CASE EVENT DATE: 20170621
